FAERS Safety Report 8384105-9 (Version None)
Quarter: 2012Q2

REPORT INFORMATION
  Report Type: 
  Country: None (occurrence: None)
  Receive Date: 20120524
  Receipt Date: 20120521
  Transmission Date: 20120825
  Serious: Yes (Other)
  Sender: FDA-Public Use
  Company Number: US-BAYER-2012-050418

PATIENT
  Age: 33 Year
  Sex: Female

DRUGS (1)
  1. MIRENA [Suspect]
     Dosage: UNK
     Dates: start: 20091201, end: 20100708

REACTIONS (8)
  - EMOTIONAL DISTRESS [None]
  - ABDOMINAL PAIN [None]
  - QUALITY OF LIFE DECREASED [None]
  - DEVICE DISLOCATION [None]
  - INJURY [None]
  - ANHEDONIA [None]
  - PROCEDURAL PAIN [None]
  - DEVICE BREAKAGE [None]
